FAERS Safety Report 17853029 (Version 2)
Quarter: 2020Q2

REPORT INFORMATION
  Report Type: Spontaneous
  Country: KR (occurrence: KR)
  Receive Date: 20200602
  Receipt Date: 20200605
  Transmission Date: 20200714
  Serious: Yes (Other)
  Sender: FDA-Public Use
  Company Number: KR-009507513-2006KOR000167

PATIENT
  Age: 46 Year
  Sex: Female

DRUGS (1)
  1. IMPLANON NXT [Suspect]
     Active Substance: ETONOGESTREL
     Dosage: 1 IMPLANT
     Route: 059
     Dates: start: 20190417, end: 20200417

REACTIONS (5)
  - Menorrhagia [Unknown]
  - Menstruation irregular [Recovered/Resolved]
  - Anaemia [Recovered/Resolved]
  - Device dislocation [Recovered/Resolved]
  - Abdominal pain lower [Unknown]

NARRATIVE: CASE EVENT DATE: 2019
